FAERS Safety Report 4490069-0 (Version None)
Quarter: 2004Q4

REPORT INFORMATION
  Report Type: 
  Country: None (occurrence: None)
  Receive Date: 20041027
  Receipt Date: 20041014
  Transmission Date: 20050328
  Serious: Yes (Other)
  Sender: FDA-Public Use
  Company Number: US-2004-029448

PATIENT
  Age: 26 Year
  Sex: Female
  Weight: 87.1 kg

DRUGS (1)
  1. MIRENA [Suspect]
     Indication: CONTRACEPTION
     Dosage: 20 UG/DAY, CONT, INTRA-UTERINE
     Route: 015
     Dates: start: 20020101, end: 20040622

REACTIONS (8)
  - DEVICE FAILURE [None]
  - FOREIGN BODY TRAUMA [None]
  - IMPLANT SITE REACTION [None]
  - IUCD COMPLICATION [None]
  - MECHANICAL COMPLICATION OF IMPLANT [None]
  - PROCEDURAL COMPLICATION [None]
  - SCAR [None]
  - UTERINE SYNECHIAE [None]
